FAERS Safety Report 13860336 (Version 1)
Quarter: 2017Q3

REPORT INFORMATION
  Report Type: Spontaneous
  Country: US (occurrence: US)
  Receive Date: 20170811
  Receipt Date: 20170811
  Transmission Date: 20171127
  Serious: No
  Sender: FDA-Public Use
  Company Number: US-SUN PHARMACEUTICAL INDUSTRIES LTD-2016US-126685

PATIENT
  Sex: Female

DRUGS (1)
  1. TRAMADOL. [Suspect]
     Active Substance: TRAMADOL
     Indication: PAIN
     Dosage: 2 DF, QID
     Route: 048

REACTIONS (3)
  - Therapeutic response decreased [Unknown]
  - Product substitution issue [Not Recovered/Not Resolved]
  - Dyspepsia [Not Recovered/Not Resolved]
